FAERS Safety Report 5103236-X (Version None)
Quarter: 2006Q3

REPORT INFORMATION
  Report Type: 
  Country: None (occurrence: None)
  Receive Date: 20060913
  Receipt Date: 20060905
  Transmission Date: 20061208
  Serious: Yes (Other)
  Sender: FDA-Public Use
  Company Number: US-JNJFOC-20060604721

PATIENT
  Sex: Female

DRUGS (7)
  1. REMICADE [Suspect]
     Indication: RHEUMATOID ARTHRITIS
     Route: 042
  2. PREMARIN [Concomitant]
  3. LIPITOR [Concomitant]
  4. GABITRIL [Concomitant]
  5. LORAZEPAM [Concomitant]
  6. FLEXERIL [Concomitant]
     Indication: MUSCLE RIGIDITY
  7. METHADONE HCL [Concomitant]

REACTIONS (5)
  - DRUG INEFFECTIVE [None]
  - GROIN PAIN [None]
  - MEMORY IMPAIRMENT [None]
  - NIGHT SWEATS [None]
  - PAIN IN EXTREMITY [None]
